FAERS Safety Report 22253271 (Version 1)
Quarter: 2023Q2

REPORT INFORMATION
  Report Type: Spontaneous
  Country: US (occurrence: None)
  Receive Date: 20230426
  Receipt Date: 20230426
  Transmission Date: 20230722
  Serious: Yes (Hospitalization, Other)
  Sender: FDA-Public Use
  Company Number: US-INFO-20230061

PATIENT
  Age: 70 Year
  Sex: Female

DRUGS (5)
  1. ZOLEDRONIC ACID [Suspect]
     Active Substance: ZOLEDRONIC ACID
     Indication: Osteoporosis
     Dosage: ()
     Route: 040
  2. PREDNISONE [Concomitant]
     Active Substance: PREDNISONE
  3. ROSUVASTATIN [Concomitant]
     Active Substance: ROSUVASTATIN
  4. VITAMIN D [Concomitant]
     Active Substance: VITAMIN D NOS
  5. CALCIUM supplementation [Concomitant]

REACTIONS (2)
  - Adrenocortical insufficiency acute [Recovered/Resolved]
  - Off label use [Unknown]
